FAERS Safety Report 7317799 (Version 3)
Quarter: 2015Q4

REPORT INFORMATION
  Report Type: Spontaneous
  Country: BR (occurrence: BR)
  Receive Date: 20100312
  Receipt Date: 20151228
  Transmission Date: 20160305
  Serious: Yes (Other)
  Sender: FDA-Public Use
  Company Number: BR-PFIZER INC-2010026718

PATIENT
  Age: 54 Year
  Sex: Male
  Weight: 80 kg

DRUGS (1)
  1. ZOLOFT [Suspect]
     Active Substance: SERTRALINE HYDROCHLORIDE
     Indication: ANXIETY
     Dosage: UNK
     Route: 048
     Dates: start: 201002

REACTIONS (6)
  - Anxiety [Unknown]
  - Hyperhidrosis [Unknown]
  - Dyspepsia [Not Recovered/Not Resolved]
  - Drug effect decreased [Unknown]
  - Oesophagitis [Unknown]
  - Oesophageal pain [Not Recovered/Not Resolved]
